FAERS Safety Report 23852967 (Version 2)
Quarter: 2024Q2

REPORT INFORMATION
  Report Type: Spontaneous
  Country: CN (occurrence: CN)
  Receive Date: 20240514
  Receipt Date: 20240520
  Transmission Date: 20240716
  Serious: Yes (Disabling)
  Sender: FDA-Public Use
  Company Number: CN-PFIZER INC-PV202400061443

PATIENT
  Age: 54 Year
  Sex: Female
  Weight: 70 kg

DRUGS (2)
  1. ZYVOX [Suspect]
     Active Substance: LINEZOLID
     Indication: Soft tissue infection
     Dosage: 0.6 G, 2X/DAY
     Route: 048
     Dates: start: 20240402, end: 20240416
  2. LINEZOLID [Suspect]
     Active Substance: LINEZOLID
     Indication: Soft tissue infection
     Dosage: 0.6 G, 2X/DAY
     Route: 048
     Dates: start: 20240416, end: 20240426

REACTIONS (6)
  - Haematuria [Recovered/Resolved]
  - Nausea [Recovered/Resolved]
  - Vomiting [Recovered/Resolved]
  - Prothrombin time prolonged [Recovered/Resolved]
  - Red blood cell count decreased [Recovered/Resolved]
  - Haemoglobin decreased [Recovered/Resolved]

NARRATIVE: CASE EVENT DATE: 20240423
